FAERS Safety Report 19311969 (Version 1)
Quarter: 2021Q2

REPORT INFORMATION
  Report Type: Spontaneous
  Country: US (occurrence: US)
  Receive Date: 20210527
  Receipt Date: 20210527
  Transmission Date: 20210717
  Serious: Yes (Other)
  Sender: FDA-Public Use
  Company Number: US-ABBVIE-21K-163-3916783-00

PATIENT
  Sex: Female

DRUGS (1)
  1. ORILISSA [Suspect]
     Active Substance: ELAGOLIX SODIUM
     Indication: PRODUCT USED FOR UNKNOWN INDICATION
     Route: 048

REACTIONS (17)
  - Tumour marker increased [Unknown]
  - Pain [Unknown]
  - Uterine pain [Unknown]
  - Medical device pain [Unknown]
  - Affective disorder [Unknown]
  - Ovarian cyst ruptured [Unknown]
  - Haemorrhagic ovarian cyst [Unknown]
  - Feeling abnormal [Unknown]
  - Fear [Unknown]
  - Vulvovaginal pain [Recovering/Resolving]
  - Drug ineffective [Unknown]
  - Endometriosis [Not Recovered/Not Resolved]
  - Adenomyosis [Unknown]
  - Anxiety [Unknown]
  - Decidual cast [Unknown]
  - Vulvovaginitis [Unknown]
  - Complication associated with device [Unknown]
